FAERS Safety Report 4320501-4 (Version None)
Quarter: 2004Q1

REPORT INFORMATION
  Report Type: 
  Country: None (occurrence: None)
  Receive Date: 20040322
  Receipt Date: 20040310
  Transmission Date: 20041129
  Serious: Yes (Other)
  Sender: FDA-Public Use
  Company Number: 200412032US

PATIENT
  Sex: Male

DRUGS (2)
  1. LANTUS [Suspect]
     Indication: DIABETES MELLITUS NON-INSULIN-DEPENDENT
     Dosage: DOSE UNIT: UNITS
     Dates: start: 20011201, end: 20031201
  2. ACTOS [Concomitant]
     Dosage: DOSE: UNK
     Dates: end: 20031201

REACTIONS (3)
  - DIABETES MELLITUS INADEQUATE CONTROL [None]
  - NAUSEA [None]
  - WEIGHT DECREASED [None]
